FAERS Safety Report 16497176 (Version 1)
Quarter: 2019Q2

REPORT INFORMATION
  Report Type: Spontaneous
  Country: US (occurrence: US)
  Receive Date: 20190628
  Receipt Date: 20190628
  Transmission Date: 20190711
  Serious: No
  Sender: FDA-Public Use
  Company Number: US-SUNOVION-2019SUN002681

PATIENT

DRUGS (7)
  1. VRAYLAR [Suspect]
     Active Substance: CARIPRAZINE
  2. LATUDA [Suspect]
     Active Substance: LURASIDONE HYDROCHLORIDE
     Dosage: UNK
     Route: 048
  3. TEGRETOL [Suspect]
     Active Substance: CARBAMAZEPINE
  4. MIRTAZAPINE. [Suspect]
     Active Substance: MIRTAZAPINE
  5. THORAZINE [Suspect]
     Active Substance: CHLORPROMAZINE
  6. ZYRTEC [Suspect]
     Active Substance: CETIRIZINE HYDROCHLORIDE
  7. PRILOSEC [Suspect]
     Active Substance: OMEPRAZOLE MAGNESIUM

REACTIONS (1)
  - Heat stroke [Unknown]
